FAERS Safety Report 6634526-7 (Version None)
Quarter: 2010Q1

REPORT INFORMATION
  Report Type: 
  Country: None (occurrence: None)
  Receive Date: 20100315
  Receipt Date: 20100304
  Transmission Date: 20100710
  Serious: Yes (Other)
  Sender: FDA-Public Use
  Company Number: CHPA2010US04480

PATIENT
  Age: 92 Year
  Sex: Female
  Weight: 58.957 kg

DRUGS (4)
  1. BENEFIBER W/ WHEAT DEXTRIN (NCH) [Suspect]
     Indication: DIVERTICULITIS
     Dosage: 3 TSP, QD
     Route: 048
     Dates: start: 20050301
  2. PROPRANOLOL [Concomitant]
     Indication: MITRAL VALVE PROLAPSE
     Dosage: UNK, UNK
     Route: 048
  3. FOSAMAX [Concomitant]
     Indication: OSTEOPENIA
     Dosage: UNK, UNK
  4. ALLERGY MEDICATION [Concomitant]
     Indication: HYPERSENSITIVITY
     Dosage: UNK

REACTIONS (11)
  - CAST APPLICATION [None]
  - FALL [None]
  - IMPAIRED HEALING [None]
  - INCORRECT DOSE ADMINISTERED [None]
  - NAUSEA [None]
  - OFF LABEL USE [None]
  - SKIN LACERATION [None]
  - SUTURE INSERTION [None]
  - THERAPEUTIC RESPONSE UNEXPECTED [None]
  - WRIST FRACTURE [None]
  - WRIST SURGERY [None]
